FAERS Safety Report 26082751 (Version 1)
Quarter: 2025Q4

REPORT INFORMATION
  Report Type: Spontaneous
  Country: US (occurrence: None)
  Receive Date: 20251123
  Receipt Date: 20251123
  Transmission Date: 20260119
  Serious: Yes (Life-Threatening, Hospitalization, Disabling, Other)
  Sender: FDA-CTU
  Company Number: None

PATIENT
  Age: 65 Year
  Sex: Female
  Weight: 58.7 kg

DRUGS (2)
  1. CARVYKTI [Suspect]
     Active Substance: CILTACABTAGENE AUTOLEUCEL
     Indication: Plasma cell myeloma
     Dates: start: 20251023, end: 20251023
  2. CARVYKTI [Concomitant]
     Active Substance: CILTACABTAGENE AUTOLEUCEL
     Dates: start: 20251023, end: 20251023

REACTIONS (9)
  - Cytokine release syndrome [None]
  - Dysstasia [None]
  - Hypoaesthesia oral [None]
  - Paraesthesia [None]
  - Vision blurred [None]
  - Cranial nerve paralysis [None]
  - Neurotoxicity [None]
  - Pain [None]
  - Parkinsonism [None]

NARRATIVE: CASE EVENT DATE: 20251107
